FAERS Safety Report 14581024 (Version 8)
Quarter: 2020Q2

REPORT INFORMATION
  Report Type: Spontaneous
  Country: US (occurrence: US)
  Receive Date: 20180228
  Receipt Date: 20200608
  Transmission Date: 20200713
  Serious: No
  Sender: FDA-Public Use
  Company Number: US-PFIZER INC-2018081087

PATIENT
  Age: 75 Year
  Sex: Female

DRUGS (4)
  1. IBRANCE [Suspect]
     Active Substance: PALBOCICLIB
     Indication: BREAST CANCER FEMALE
     Dosage: 125 MG, CYCLIC (FOR 21 DAYS)
     Route: 048
     Dates: start: 20180116, end: 2018
  2. IBRANCE [Suspect]
     Active Substance: PALBOCICLIB
     Dosage: 125 MG, DAILY
     Dates: start: 20190220
  3. IBRANCE [Suspect]
     Active Substance: PALBOCICLIB
     Dosage: 125 MG, 1X/DAY
     Route: 048
     Dates: start: 2018
  4. IBRANCE [Suspect]
     Active Substance: PALBOCICLIB
     Dosage: 100 MG, CYCLIC (DAILY, DAYS 1-21 EVERY 28 DAYS)
     Route: 048
     Dates: start: 20180220

REACTIONS (5)
  - Alopecia [Not Recovered/Not Resolved]
  - Nausea [Not Recovered/Not Resolved]
  - Constipation [Unknown]
  - Fatigue [Not Recovered/Not Resolved]
  - Dizziness [Unknown]

NARRATIVE: CASE EVENT DATE: 20180221
